FAERS Safety Report 7609177-8 (Version None)
Quarter: 2011Q3

REPORT INFORMATION
  Report Type: 
  Country: None (occurrence: None)
  Receive Date: 20110713
  Receipt Date: 20110713
  Transmission Date: 20111222
  Serious: Yes (Hospitalization)
  Sender: FDA-Public Use
  Company Number: None

PATIENT
  Sex: Female
  Weight: 48.9 kg

DRUGS (14)
  1. ZOFRAN [Concomitant]
  2. COMPAZINE [Concomitant]
  3. MULTIVITAMIN [Concomitant]
  4. MEGACE [Concomitant]
  5. ATIVAN [Concomitant]
  6. OXALIPLATIN [Suspect]
     Indication: COLORECTAL CANCER
  7. FLUOROURACIL [Suspect]
  8. ELMA CREAM [Concomitant]
  9. FOLINIC ACID [Suspect]
     Indication: COLORECTAL CANCER
  10. LORTAB [Concomitant]
  11. MS CONTIN [Concomitant]
  12. SENNA [Concomitant]
  13. DUCOLOX [Concomitant]
  14. AMBIEN [Concomitant]

REACTIONS (4)
  - MUCOSAL INFLAMMATION [None]
  - BACK PAIN [None]
  - FEBRILE NEUTROPENIA [None]
  - PROCTALGIA [None]
